FAERS Safety Report 22795831 (Version 3)
Quarter: 2023Q4

REPORT INFORMATION
  Report Type: Spontaneous
  Country: US (occurrence: US)
  Receive Date: 20230807
  Receipt Date: 20231010
  Transmission Date: 20240110
  Serious: No
  Sender: FDA-Public Use
  Company Number: US-Blueprint Medicines Corporation-1314

PATIENT
  Sex: Female

DRUGS (1)
  1. AYVAKIT [Suspect]
     Active Substance: AVAPRITINIB
     Indication: Mastocytic leukaemia
     Route: 065
     Dates: start: 20210629

REACTIONS (5)
  - Middle ear effusion [Unknown]
  - Sinusitis [Unknown]
  - Rhinorrhoea [Unknown]
  - Otorrhoea [Unknown]
  - Pain [Unknown]
